FAERS Safety Report 24242859 (Version 1)
Quarter: 2024Q3

REPORT INFORMATION
  Report Type: Spontaneous
  Country: DE (occurrence: DE)
  Receive Date: 20240823
  Receipt Date: 20240823
  Transmission Date: 20241017
  Serious: Yes (Other)
  Sender: RANBAXY
  Company Number: DE-SUN PHARMACEUTICAL INDUSTRIES LTD-2024RR-462891

PATIENT
  Age: 23 Year
  Sex: Female

DRUGS (12)
  1. METHOTREXATE [Suspect]
     Active Substance: METHOTREXATE
     Indication: Still^s disease
  2. METHOTREXATE [Suspect]
     Active Substance: METHOTREXATE
     Dosage: 15 MILLIGRAM
     Route: 065
  3. MEROPENEM [Suspect]
     Active Substance: MEROPENEM
     Indication: Antibiotic therapy
     Dosage: UNK
     Route: 065
  4. CASPOFUNGIN [Suspect]
     Active Substance: CASPOFUNGIN
     Indication: Antibiotic therapy
  5. CASPOFUNGIN [Suspect]
     Active Substance: CASPOFUNGIN
     Dosage: UNK
     Route: 065
  6. PREDNISOLONE [Suspect]
     Active Substance: PREDNISOLONE
     Indication: Product used for unknown indication
  7. PREDNISOLONE [Suspect]
     Active Substance: PREDNISOLONE
     Dosage: 60 MILLIGRAM, DAILY
     Route: 065
  8. PREDNISOLONE [Suspect]
     Active Substance: PREDNISOLONE
     Dosage: 40 MILLIGRAM, DAILY
     Route: 048
  9. PREDNISOLONE [Suspect]
     Active Substance: PREDNISOLONE
     Dosage: 250 MILLIGRAM
     Route: 040
  10. LINEZOLID [Suspect]
     Active Substance: LINEZOLID
     Dosage: UNK
     Route: 065
  11. LINEZOLID [Suspect]
     Active Substance: LINEZOLID
     Indication: Antibiotic therapy
  12. LINEZOLID [Suspect]
     Active Substance: LINEZOLID

REACTIONS (2)
  - Condition aggravated [Unknown]
  - Drug ineffective [Unknown]
